FAERS Safety Report 13071989 (Version 1)
Quarter: 2016Q4

REPORT INFORMATION
  Report Type: Spontaneous
  Country: US (occurrence: US)
  Receive Date: 20161228
  Receipt Date: 20161228
  Transmission Date: 20170207
  Serious: Yes (Hospitalization, Disabling)
  Sender: FDA-Public Use
  Company Number: None

PATIENT
  Age: 59 Year
  Sex: Male
  Weight: 45.2 kg

DRUGS (2)
  1. ZALCITABINE [Suspect]
     Active Substance: ZALCITABINE
     Indication: ACQUIRED IMMUNODEFICIENCY SYNDROME
     Dosage: ?          OTHER FREQUENCY:EVERY 4 HRS;?
     Route: 048
  2. ZIDOVUDINE. [Concomitant]
     Active Substance: ZIDOVUDINE

REACTIONS (13)
  - Asthenia [None]
  - Osteoarthritis [None]
  - Myalgia [None]
  - Back pain [None]
  - Osteoporosis [None]
  - Pyrexia [None]
  - Arthralgia [None]
  - Eye swelling [None]
  - Aspergillus infection [None]
  - Fatigue [None]
  - Stress fracture [None]
  - Toxicity to various agents [None]
  - Body height decreased [None]

NARRATIVE: CASE EVENT DATE: 20161207
